FAERS Safety Report 25816015 (Version 1)
Quarter: 2025Q3

REPORT INFORMATION
  Report Type: Spontaneous
  Country: EU (occurrence: EU)
  Receive Date: 20250918
  Receipt Date: 20250918
  Transmission Date: 20251020
  Serious: Yes (Other)
  Sender: ORGANON
  Company Number: None

PATIENT
  Age: 25 Year
  Sex: Male

DRUGS (5)
  1. MIRTAZAPINE [Suspect]
     Active Substance: MIRTAZAPINE
     Route: 048
  2. CITALOPRAM HYDROCHLORIDE [Suspect]
     Active Substance: CITALOPRAM HYDROCHLORIDE
     Route: 048
  3. CANNABIS SATIVA SUBSP. INDICA TOP [Suspect]
     Active Substance: CANNABIS SATIVA SUBSP. INDICA TOP
  4. COCAINE [Suspect]
     Active Substance: COCAINE
  5. ALCOHOL [Suspect]
     Active Substance: ALCOHOL
     Route: 048

REACTIONS (1)
  - Chemical submission [Unknown]

NARRATIVE: CASE EVENT DATE: 20250501
